FAERS Safety Report 5032840-2 (Version None)
Quarter: 2006Q2

REPORT INFORMATION
  Report Type: 
  Country: None (occurrence: None)
  Receive Date: 20060622
  Receipt Date: 20050719
  Transmission Date: 20061013
  Serious: Yes (Life-Threatening, Hospitalization)
  Sender: FDA-Public Use
  Company Number: US-GLAXOSMITHKLINE-A0567390A

PATIENT
  Age: 24 Year
  Sex: Female

DRUGS (7)
  1. PAXIL CR [Suspect]
     Indication: DEPRESSION
     Dosage: 25MG PER DAY
     Route: 048
     Dates: start: 20020921
  2. REMERON [Suspect]
     Dosage: 30MG AT NIGHT
     Route: 048
     Dates: start: 20030501, end: 20030701
  3. PRILOSEC [Concomitant]
  4. LAMICTAL [Concomitant]
  5. ZYPREXA [Concomitant]
  6. LORAZEPAM [Concomitant]
  7. LEXAPRO [Concomitant]

REACTIONS (12)
  - AGITATION [None]
  - ANXIETY [None]
  - CLOSED HEAD INJURY [None]
  - DISTURBANCE IN ATTENTION [None]
  - DRUG WITHDRAWAL SYNDROME [None]
  - HALLUCINATION, AUDITORY [None]
  - LOWER LIMB FRACTURE [None]
  - PSYCHOTIC DISORDER [None]
  - SCHIZOAFFECTIVE DISORDER [None]
  - SPINAL FRACTURE [None]
  - SUICIDAL IDEATION [None]
  - SUICIDE ATTEMPT [None]
